FAERS Safety Report 20920968 (Version 1)
Quarter: 2022Q2

REPORT INFORMATION
  Report Type: Spontaneous
  Country: US (occurrence: US)
  Receive Date: 20220606
  Receipt Date: 20220606
  Transmission Date: 20220721
  Serious: Yes (Other)
  Sender: FDA-Public Use
  Company Number: US-NOVARTISPH-NVSC2022US126795

PATIENT
  Sex: Female

DRUGS (5)
  1. METOPROLOL TARTRATE [Suspect]
     Active Substance: METOPROLOL TARTRATE
     Indication: Foetal exposure during pregnancy
     Dosage: MATERNAL DOSE: 12.5 MG BID
     Route: 064
  2. ALBUTEROL SULFATE [Suspect]
     Active Substance: ALBUTEROL SULFATE
     Indication: Foetal exposure during pregnancy
     Dosage: MATERNAL DOSE: UNK
     Route: 064
  3. METHIMAZOLE [Suspect]
     Active Substance: METHIMAZOLE
     Indication: Foetal exposure during pregnancy
     Dosage: MATERNAL DOSE:1 DOSAGE FORM, ONCE/SINGLE
     Route: 064
  4. METHIMAZOLE [Suspect]
     Active Substance: METHIMAZOLE
     Dosage: MATERNAL DOSE: 20 MG BID
     Route: 064
  5. HYDROCORTISONE [Suspect]
     Active Substance: HYDROCORTISONE
     Indication: Foetal exposure during pregnancy
     Dosage: MATERNAL DOSE: 50 MG, Q8H
     Route: 064

REACTIONS (4)
  - Hyperthyroidism [Unknown]
  - Premature baby [Unknown]
  - Low birth weight baby [Unknown]
  - Foetal exposure during pregnancy [Unknown]
